FAERS Safety Report 23420036 (Version 2)
Quarter: 2024Q1

REPORT INFORMATION
  Report Type: Report from Study
  Country: US (occurrence: US)
  Receive Date: 20240119
  Receipt Date: 20240120
  Transmission Date: 20240409
  Serious: Yes (Death)
  Sender: FDA-Public Use
  Company Number: US-ABBVIE-5595794

PATIENT
  Age: 77 Year
  Sex: Female

DRUGS (1)
  1. SYNTHROID [Suspect]
     Active Substance: LEVOTHYROXINE SODIUM
     Indication: Hypothyroidism
     Dosage: FORM STRENGTH: 112 MICROGRAM?START DATE TEXT: 20 YEARS AGO
     Route: 048
     Dates: start: 2004

REACTIONS (3)
  - Acute myeloid leukaemia [Fatal]
  - Depression [Unknown]
  - Asthma [Unknown]

NARRATIVE: CASE EVENT DATE: 20231216
